FAERS Safety Report 7762455-4 (Version None)
Quarter: 2011Q3

REPORT INFORMATION
  Report Type: 
  Country: None (occurrence: None)
  Receive Date: 20110920
  Receipt Date: 20110620
  Transmission Date: 20111222
  Serious: No
  Sender: FDA-Public Use
  Company Number: US-MYLANLABS-2011S1012774

PATIENT
  Age: 75 Year
  Sex: Female
  Weight: 74.84 kg

DRUGS (4)
  1. RISPERIDONE [Suspect]
     Indication: BIPOLAR DISORDER
     Dates: start: 20100301
  2. EVISTA [Concomitant]
     Indication: OSTEOPENIA
     Dates: start: 20090101
  3. LEVOTHYROXINE SODIUM [Concomitant]
     Indication: HYPOTHYROIDISM
     Dates: start: 20060101
  4. SERTRALINE HYDROCHLORIDE [Concomitant]
     Indication: BIPOLAR DISORDER
     Dates: start: 20110301

REACTIONS (2)
  - DRY MOUTH [None]
  - DYSGEUSIA [None]
